FAERS Safety Report 10785639 (Version 1)
Quarter: 2015Q1

REPORT INFORMATION
  Report Type: Spontaneous
  Country: US (occurrence: None)
  Receive Date: 20150210
  Receipt Date: 20150210
  Transmission Date: 20150721
  Serious: No
  Sender: FDA-Public Use
  Company Number: None

PATIENT
  Age: 75 Year
  Sex: Female
  Weight: 63.05 kg

DRUGS (3)
  1. LOVASTATIN. [Suspect]
     Active Substance: LOVASTATIN
     Indication: CORONARY ARTERY DISEASE
     Dates: end: 201006
  2. SIMVASTATIN. [Suspect]
     Active Substance: SIMVASTATIN
     Dates: end: 201405
  3. ATORVASTATIN [Suspect]
     Active Substance: ATORVASTATIN
     Dates: end: 2008

REACTIONS (2)
  - Bone pain [None]
  - Myalgia [None]
